FAERS Safety Report 19867930 (Version 1)
Quarter: 2021Q3

REPORT INFORMATION
  Report Type: Other
  Country: FR (occurrence: FR)
  Receive Date: 20210922
  Receipt Date: 20210922
  Transmission Date: 20211014
  Serious: Yes (Death, Other)
  Sender: FDA-Public Use
  Company Number: FR-ROCHE-2915870

PATIENT

DRUGS (4)
  1. LENALIDOMIDE [Suspect]
     Active Substance: LENALIDOMIDE
     Indication: B-CELL LYMPHOMA
     Route: 065
  2. BRENTUXIMAB VEDOTIN [Suspect]
     Active Substance: BRENTUXIMAB VEDOTIN
     Indication: B-CELL LYMPHOMA
     Route: 065
  3. BENDAMUSTINE [Suspect]
     Active Substance: BENDAMUSTINE
     Indication: B-CELL LYMPHOMA
     Route: 065
  4. RITUXIMAB. [Suspect]
     Active Substance: RITUXIMAB
     Indication: B-CELL LYMPHOMA
     Route: 065

REACTIONS (10)
  - Colitis [Unknown]
  - Aspergillus infection [Unknown]
  - Fungal infection [Fatal]
  - Respiratory failure [Unknown]
  - Bacteraemia [Unknown]
  - Cytomegalovirus infection reactivation [Unknown]
  - Cytopenia [Unknown]
  - Systemic candida [Unknown]
  - Myelosuppression [Unknown]
  - Pneumonitis [Unknown]
